FAERS Safety Report 19992217 (Version 2)
Quarter: 2021Q4

REPORT INFORMATION
  Report Type: Report from Study
  Country: JP (occurrence: JP)
  Receive Date: 20211026
  Receipt Date: 20211101
  Transmission Date: 20220303
  Serious: Yes (Hospitalization)
  Sender: FDA-Public Use
  Company Number: JP-SAKK-2019SA041399AA

PATIENT
  Age: 68 Year
  Sex: Female
  Weight: 47.6 kg

DRUGS (40)
  1. ISATUXIMAB [Suspect]
     Active Substance: ISATUXIMAB
     Indication: Plasma cell myeloma
     Dosage: 480 MG, 1X
     Route: 042
     Dates: start: 20190205, end: 20190205
  2. ISATUXIMAB [Suspect]
     Active Substance: ISATUXIMAB
     Dosage: 480 MG, QW
     Route: 042
     Dates: start: 20190226, end: 20190305
  3. ISATUXIMAB [Suspect]
     Active Substance: ISATUXIMAB
     Dosage: 482 MG, 1X
     Route: 042
     Dates: start: 20190319, end: 20190319
  4. LENALIDOMIDE [Suspect]
     Active Substance: LENALIDOMIDE
     Indication: Plasma cell myeloma
     Dosage: 25 MG, QD
     Route: 048
     Dates: start: 20190205, end: 20190211
  5. LENALIDOMIDE [Suspect]
     Active Substance: LENALIDOMIDE
     Dosage: 20 MG, QD
     Route: 048
     Dates: start: 20190226, end: 20190311
  6. LENALIDOMIDE [Suspect]
     Active Substance: LENALIDOMIDE
     Dosage: 20 MG, QD
     Route: 048
     Dates: start: 20190319, end: 20190401
  7. BORTEZOMIB [Suspect]
     Active Substance: BORTEZOMIB
     Indication: Plasma cell myeloma
     Dosage: 1.86 MG, BIW (DAY 1, DAY 4)
     Route: 058
     Dates: start: 20190205, end: 20190208
  8. BORTEZOMIB [Suspect]
     Active Substance: BORTEZOMIB
     Dosage: 1.43 MG/WEEK (DAY 22, DAY 29)
     Route: 058
     Dates: start: 20190226, end: 20190305
  9. BORTEZOMIB [Suspect]
     Active Substance: BORTEZOMIB
     Dosage: 1.43 MG/WEEK (DAY 1, DAY 8)
     Route: 058
     Dates: start: 20190319, end: 20190326
  10. DEXAMETHASONE [Suspect]
     Active Substance: DEXAMETHASONE
     Indication: Plasma cell myeloma
     Dosage: 20 MG, 1X
     Route: 042
     Dates: start: 20190205, end: 20190205
  11. DEXAMETHASONE [Suspect]
     Active Substance: DEXAMETHASONE
     Dosage: 12 MG/WEEK (DAY 22, DAY 29)
     Route: 042
     Dates: start: 20190226, end: 20190305
  12. DEXAMETHASONE [Suspect]
     Active Substance: DEXAMETHASONE
     Dosage: 12 MG, 1X
     Route: 042
     Dates: start: 20190319, end: 20190319
  13. DEXAMETHASONE [Suspect]
     Active Substance: DEXAMETHASONE
     Indication: Plasma cell myeloma
     Dosage: 20 MG, TIW
     Route: 048
     Dates: start: 20190206, end: 20190209
  14. DEXAMETHASONE [Suspect]
     Active Substance: DEXAMETHASONE
     Dosage: 12 MG, TIW
     Route: 048
     Dates: start: 20190227, end: 20190302
  15. DEXAMETHASONE [Suspect]
     Active Substance: DEXAMETHASONE
     Dosage: 12 MG, TIW
     Route: 048
     Dates: start: 20190306, end: 20190309
  16. DEXAMETHASONE [Suspect]
     Active Substance: DEXAMETHASONE
     Dosage: 12 MG, TIW
     Route: 048
     Dates: start: 20190320, end: 20190323
  17. DEXAMETHASONE [Suspect]
     Active Substance: DEXAMETHASONE
     Dosage: 12 MG, QD
     Route: 048
     Dates: start: 20190326, end: 20190327
  18. RANITIDINE [Concomitant]
     Active Substance: RANITIDINE
     Indication: Prophylaxis
     Dosage: 50 MG, QW
     Route: 042
     Dates: start: 20190205, end: 20190205
  19. RANITIDINE [Concomitant]
     Active Substance: RANITIDINE
     Dosage: 50 MG/DAY
     Route: 042
     Dates: start: 20190305, end: 20190305
  20. RANITIDINE [Concomitant]
     Active Substance: RANITIDINE
     Dosage: 50 MG/DAY
     Route: 042
     Dates: start: 20190319, end: 20190319
  21. POLARAMINE [Concomitant]
     Active Substance: DEXCHLORPHENIRAMINE MALEATE
     Indication: Prophylaxis
     Dosage: 5 MG, QW
     Route: 042
     Dates: start: 20190205, end: 20190205
  22. POLARAMINE [Concomitant]
     Active Substance: DEXCHLORPHENIRAMINE MALEATE
     Dosage: 5 MG/DAY
     Route: 042
     Dates: start: 20190305, end: 20190305
  23. POLARAMINE [Concomitant]
     Active Substance: DEXCHLORPHENIRAMINE MALEATE
     Dosage: 5 MG/DAY
     Route: 042
     Dates: start: 20190319, end: 20190319
  24. CALONAL [Concomitant]
     Active Substance: ACETAMINOPHEN
     Indication: Prophylaxis
     Dosage: 800 MG, QD
     Route: 048
     Dates: start: 20190205, end: 20190205
  25. CALONAL [Concomitant]
     Active Substance: ACETAMINOPHEN
     Dosage: UNK
     Route: 048
     Dates: start: 20190211, end: 20190211
  26. CALONAL [Concomitant]
     Active Substance: ACETAMINOPHEN
     Dosage: 800 MG/DAY
     Route: 048
     Dates: start: 20190305, end: 20190305
  27. CALONAL [Concomitant]
     Active Substance: ACETAMINOPHEN
     Dosage: 800 MG/DAY
     Route: 048
     Dates: start: 20190319, end: 20190319
  28. AMLODIPINE [Concomitant]
     Active Substance: AMLODIPINE BESYLATE
     Indication: Hypertension
     Dosage: 5 MG, QD
     Route: 048
     Dates: start: 20151115
  29. ASPIRIN [Concomitant]
     Active Substance: ASPIRIN
     Indication: Thrombosis prophylaxis
     Dosage: 100 MG, TID
     Route: 048
     Dates: start: 20190205, end: 20210202
  30. MAGNESIUM OXIDE [Concomitant]
     Active Substance: MAGNESIUM OXIDE
     Indication: Constipation prophylaxis
     Dosage: 330 MG, PRN
     Route: 048
     Dates: start: 20190205, end: 20201201
  31. SODIUM PICOSULFATE [Concomitant]
     Active Substance: SODIUM PICOSULFATE
     Indication: Constipation
     Dosage: APPROPRIATE AMOUNT, PRN
     Route: 048
     Dates: start: 20190210, end: 20200210
  32. LECICARBON A [Concomitant]
     Indication: Constipation
     Dosage: APPROPRIATE AMOUNT, PRN
     Route: 050
     Dates: start: 20190210, end: 20190212
  33. AMOXICILLIN\CLARITHROMYCIN\ESOMEPRAZOLE [Concomitant]
     Active Substance: AMOXICILLIN\CLARITHROMYCIN\ESOMEPRAZOLE
     Indication: Prophylaxis against gastrointestinal ulcer
     Dosage: 20 MG, QD
     Route: 048
     Dates: start: 20190204
  34. SULFAMETHOXAZOLE\TRIMETHOPRIM [Concomitant]
     Active Substance: SULFAMETHOXAZOLE\TRIMETHOPRIM
     Indication: Antifungal prophylaxis
     Dosage: 800 MG, BIW
     Route: 048
     Dates: start: 20190205
  35. VALACYCLOVIR HYDROCHLORIDE [Concomitant]
     Active Substance: VALACYCLOVIR HYDROCHLORIDE
     Indication: Infection prophylaxis
     Dosage: 500 MG, BID
     Route: 048
     Dates: start: 20190204, end: 20200210
  36. FLUCONAZOLE [Concomitant]
     Active Substance: FLUCONAZOLE
     Indication: Infection prophylaxis
     Dosage: 25 MG, QD
     Route: 048
     Dates: start: 20190205, end: 20190213
  37. ZOLPIDEM TARTRATE [Concomitant]
     Active Substance: ZOLPIDEM TARTRATE
     Indication: Insomnia
     Dosage: 5 MG, ADJUSTING
     Route: 048
     Dates: start: 20190207, end: 20190207
  38. FEBUXOSTAT [Concomitant]
     Active Substance: FEBUXOSTAT
     Indication: Prophylaxis
     Dosage: 20 MG, QD
     Route: 048
     Dates: start: 20190204, end: 20190210
  39. CEFEPIME HYDROCHLORIDE [Concomitant]
     Active Substance: CEFEPIME HYDROCHLORIDE
     Indication: Product used for unknown indication
     Dosage: UNK
     Route: 042
     Dates: start: 20190211, end: 20190221
  40. ALPRAZOLAM [Concomitant]
     Active Substance: ALPRAZOLAM
     Indication: Prophylaxis
     Dosage: UNK
     Route: 048
     Dates: start: 20190128, end: 20190130

REACTIONS (2)
  - Ileus [Recovered/Resolved]
  - Pneumonia aspiration [Recovered/Resolved]

NARRATIVE: CASE EVENT DATE: 20190211
